FAERS Safety Report 18661807 (Version 1)
Quarter: 2020Q4

REPORT INFORMATION
  Report Type: Report from Study
  Country: US (occurrence: US)
  Receive Date: 20201224
  Receipt Date: 20201224
  Transmission Date: 20210114
  Serious: Yes (Hospitalization)
  Sender: FDA-Public Use
  Company Number: US-JNJFOC-20201236511

PATIENT
  Age: 64 Year
  Sex: Male

DRUGS (9)
  1. DOXYCYCLINE HYCLATE. [Concomitant]
     Active Substance: DOXYCYCLINE HYCLATE
  2. WARFARIN [Concomitant]
     Active Substance: WARFARIN
  3. TAMSULOSIN [Concomitant]
     Active Substance: TAMSULOSIN
  4. STELARA [Suspect]
     Active Substance: USTEKINUMAB
     Indication: PSORIASIS
     Route: 058
     Dates: start: 20201006
  5. BUDESONIDE. [Concomitant]
     Active Substance: BUDESONIDE
  6. BETHANECHOL [Concomitant]
     Active Substance: BETHANECHOL
  7. MELOXICAM. [Concomitant]
     Active Substance: MELOXICAM
  8. BETAMETHASONE DIPROPIONATE. [Concomitant]
     Active Substance: BETAMETHASONE DIPROPIONATE
  9. STELARA [Suspect]
     Active Substance: USTEKINUMAB

REACTIONS (2)
  - Pulmonary sepsis [Unknown]
  - Arthritis infective [Unknown]

NARRATIVE: CASE EVENT DATE: 202010
